FAERS Safety Report 7798057-3 (Version None)
Quarter: 2011Q4

REPORT INFORMATION
  Report Type: 
  Country: None (occurrence: None)
  Receive Date: 20111005
  Receipt Date: 20110915
  Transmission Date: 20120403
  Serious: Yes (Hospitalization)
  Sender: FDA-Public Use
  Company Number: CHPA2011US13518

PATIENT
  Age: 49 Year
  Sex: Female
  Weight: 59 kg

DRUGS (13)
  1. DIHYDROERGOTAMINE MESYLATE [Interacting]
     Dosage: 1 MG, UNK
     Route: 042
  2. ACETAMINOPHEN AND HYDROCODONE BITARTRATE [Concomitant]
     Indication: HEADACHE
  3. DULOXETIME HYDROCHLORIDE [Concomitant]
  4. NATALIZUMAB [Concomitant]
  5. VERAPAMIL [Interacting]
     Indication: HYPERTENSION
     Dosage: 120 MG, QHS
     Route: 048
  6. MORPHINE SULFATE [Concomitant]
     Dosage: 15-30 MG, EVERY 4 HOURS AS NEEDED
     Route: 048
  7. NICOTINE [Suspect]
     Indication: SMOKING CESSATION THERAPY
     Dosage: 7 MG, UNK
     Route: 062
  8. GABAPENTIN [Concomitant]
     Indication: HEADACHE
  9. AMANTADINE HCL [Concomitant]
  10. LORAZEPAM [Concomitant]
     Dosage: 1 MG
     Route: 048
  11. VERAPAMIL [Interacting]
     Dosage: 180 MG/DAY
  12. HALOPERIDOL [Concomitant]
     Dosage: 0.5 MG
     Route: 042
  13. FENTANYL [Concomitant]
     Indication: PAIN
     Dosage: 12.5 MCG

REACTIONS (10)
  - NAUSEA [None]
  - SOMNOLENCE [None]
  - PRINZMETAL ANGINA [None]
  - CHEST PAIN [None]
  - MITRAL VALVE INCOMPETENCE [None]
  - DRUG INTERACTION [None]
  - BLOOD PRESSURE DECREASED [None]
  - VASOSPASM [None]
  - TROPONIN I INCREASED [None]
  - HEART RATE DECREASED [None]
